FAERS Safety Report 13752638 (Version 1)
Quarter: 2017Q3

REPORT INFORMATION
  Report Type: Spontaneous
  Country: US (occurrence: US)
  Receive Date: 20170713
  Receipt Date: 20170713
  Transmission Date: 20171127
  Serious: No
  Sender: FDA-Public Use
  Company Number: US-FERRINGPH-2017FE00292

PATIENT
  Age: 16 Year
  Sex: Male
  Weight: 52.61 kg

DRUGS (3)
  1. ZOMACTON [Suspect]
     Active Substance: SOMATROPIN
     Indication: GROWTH RETARDATION
     Dosage: 0.03 MG/KG, 1 TIME DAILY
     Route: 058
     Dates: start: 201609, end: 201611
  2. ANASTROZOLE. [Concomitant]
     Active Substance: ANASTROZOLE
     Indication: PRODUCT USED FOR UNKNOWN INDICATION
     Dosage: 2 MG, 1 TIME DAILY
     Route: 065
  3. ZOMACTON [Suspect]
     Active Substance: SOMATROPIN
     Dosage: 0.0675 MG/KG, 1 TIME DAILY
     Route: 058
     Dates: start: 201612

REACTIONS (6)
  - Drug ineffective [Unknown]
  - Device malfunction [Unknown]
  - Product preparation error [Unknown]
  - Injection site haemorrhage [None]
  - Drug ineffective [Unknown]
  - Off label use [Unknown]

NARRATIVE: CASE EVENT DATE: 201609
